FAERS Safety Report 7941543-3 (Version None)
Quarter: 2011Q4

REPORT INFORMATION
  Report Type: 
  Country: None (occurrence: None)
  Receive Date: 20111122
  Receipt Date: 20111114
  Transmission Date: 20120403
  Serious: Yes (Other)
  Sender: FDA-Public Use
  Company Number: US-ACCORD-011343

PATIENT
  Sex: Female

DRUGS (1)
  1. MITOMYCIN [Suspect]
     Indication: TRABECULECTOMY

REACTIONS (2)
  - OFF LABEL USE [None]
  - CORNEAL EPITHELIAL MICROCYSTS [None]
